FAERS Safety Report 9650890 (Version 1)
Quarter: 2013Q4

REPORT INFORMATION
  Report Type: Spontaneous
  Country: US (occurrence: US)
  Receive Date: 20131029
  Receipt Date: 20131029
  Transmission Date: 20140711
  Serious: No
  Sender: FDA-Public Use
  Company Number: US-PFIZER INC-2013306322

PATIENT
  Age: 43 Year
  Sex: Female
  Weight: 78.46 kg

DRUGS (3)
  1. LYRICA [Suspect]
     Indication: BACK PAIN
     Dosage: WITHIN A RANGE OF 175MG TO 225MG , 2X/DAY
     Route: 048
  2. LYRICA [Suspect]
     Indication: PAIN
     Dosage: UNK
     Route: 048
  3. LYRICA [Suspect]
     Indication: NEUROPATHY PERIPHERAL

REACTIONS (3)
  - Off label use [Unknown]
  - Laboratory test abnormal [Unknown]
  - Drug ineffective for unapproved indication [Unknown]
